FAERS Safety Report 19247878 (Version 3)
Quarter: 2021Q3

REPORT INFORMATION
  Report Type: Spontaneous
  Country: US (occurrence: US)
  Receive Date: 20210512
  Receipt Date: 20210805
  Transmission Date: 20211014
  Serious: No
  Sender: FDA-Public Use
  Company Number: US-PFIZER INC-2020188735

PATIENT
  Age: 67 Year
  Sex: Male

DRUGS (1)
  1. LYRICA [Suspect]
     Active Substance: PREGABALIN
     Dosage: 200 MG, 4X/DAY (TAKE 1 CAPSULE BY MOUTH (4) FOUR TIMES DAILY)
     Route: 048

REACTIONS (2)
  - Pain [Unknown]
  - Prescribed overdose [Unknown]
